FAERS Safety Report 6336873-5 (Version None)
Quarter: 2009Q3

REPORT INFORMATION
  Report Type: 
  Country: None (occurrence: None)
  Receive Date: 20090901
  Receipt Date: 20090819
  Transmission Date: 20100115
  Serious: Yes (Disabling)
  Sender: FDA-Public Use
  Company Number: CA-CELGENEUS-028-20785-09051842

PATIENT
  Sex: Female

DRUGS (2)
  1. THALOMID [Suspect]
     Indication: MULTIPLE MYELOMA
     Route: 048
     Dates: start: 20061201, end: 20070901
  2. THALOMID [Suspect]
     Route: 048
     Dates: start: 20070901, end: 20081001

REACTIONS (5)
  - BURNING SENSATION [None]
  - HYPOAESTHESIA [None]
  - LIGHT CHAIN ANALYSIS INCREASED [None]
  - MUSCLE SPASMS [None]
  - NEUROTOXICITY [None]
